FAERS Safety Report 17353194 (Version 1)
Quarter: 2020Q1

REPORT INFORMATION
  Report Type: Spontaneous
  Country: US (occurrence: US)
  Receive Date: 20200131
  Receipt Date: 20200131
  Transmission Date: 20200409
  Serious: Yes (Other)
  Sender: FDA-Public Use
  Company Number: US-STRIDES ARCOLAB LIMITED-2019SP012156

PATIENT
  Age: 23 Year
  Sex: Male

DRUGS (22)
  1. CYPROHEPTADINE. [Suspect]
     Active Substance: CYPROHEPTADINE
     Indication: EVIDENCE BASED TREATMENT
  2. MELATONIN [Concomitant]
     Active Substance: MELATONIN
     Indication: DRUG WITHDRAWAL SYNDROME
  3. CYPROHEPTADINE. [Suspect]
     Active Substance: CYPROHEPTADINE
     Indication: SEROTONIN SYNDROME
     Dosage: UNK
     Route: 065
  4. MELATONIN [Concomitant]
     Active Substance: MELATONIN
     Indication: SUBSTANCE-INDUCED PSYCHOTIC DISORDER
     Dosage: UNK
     Route: 065
  5. GABAPENTIN. [Suspect]
     Active Substance: GABAPENTIN
     Indication: DRUG WITHDRAWAL SYNDROME
  6. CYPROHEPTADINE. [Suspect]
     Active Substance: CYPROHEPTADINE
     Indication: NEUROLEPTIC MALIGNANT SYNDROME
  7. LORAZEPAM. [Concomitant]
     Active Substance: LORAZEPAM
     Indication: SUBSTANCE-INDUCED PSYCHOTIC DISORDER
     Dosage: UNK
     Route: 065
  8. LORAZEPAM. [Concomitant]
     Active Substance: LORAZEPAM
     Indication: AGITATION
  9. LORAZEPAM. [Concomitant]
     Active Substance: LORAZEPAM
     Indication: DRUG WITHDRAWAL SYNDROME
  10. OLANZAPINE. [Concomitant]
     Active Substance: OLANZAPINE
     Indication: DRUG WITHDRAWAL SYNDROME
  11. BACLOFEN. [Suspect]
     Active Substance: BACLOFEN
     Indication: RHABDOMYOLYSIS
     Dosage: UNK
     Route: 065
  12. GABAPENTIN. [Suspect]
     Active Substance: GABAPENTIN
     Indication: AGITATION
     Dosage: UNK
     Route: 065
  13. PHENIBUT [Concomitant]
     Active Substance: DIETARY SUPPLEMENT
     Indication: PRODUCT USED FOR UNKNOWN INDICATION
     Dosage: 4000 MILLIGRAM, EVERY 6 HRS
     Route: 065
  14. SERTRALINE [Concomitant]
     Active Substance: SERTRALINE HYDROCHLORIDE
     Indication: DEPRESSION
  15. HALOPERIDOL. [Concomitant]
     Active Substance: HALOPERIDOL
     Indication: DRUG WITHDRAWAL SYNDROME
  16. DIPHENHYDRAMINE. [Concomitant]
     Active Substance: DIPHENHYDRAMINE
     Indication: SUBSTANCE-INDUCED PSYCHOTIC DISORDER
     Dosage: UNK
     Route: 065
  17. SERTRALINE [Concomitant]
     Active Substance: SERTRALINE HYDROCHLORIDE
     Indication: ANXIETY
     Dosage: UNK
     Route: 065
  18. DIPHENHYDRAMINE. [Concomitant]
     Active Substance: DIPHENHYDRAMINE
     Indication: DRUG WITHDRAWAL SYNDROME
  19. OLANZAPINE. [Concomitant]
     Active Substance: OLANZAPINE
     Indication: SUBSTANCE-INDUCED PSYCHOTIC DISORDER
     Dosage: UNK
     Route: 065
  20. GABAPENTIN. [Suspect]
     Active Substance: GABAPENTIN
     Indication: SUBSTANCE-INDUCED PSYCHOTIC DISORDER
  21. HALOPERIDOL. [Concomitant]
     Active Substance: HALOPERIDOL
     Indication: SUBSTANCE-INDUCED PSYCHOTIC DISORDER
     Dosage: UNK
     Route: 065
  22. DEXMEDETOMIDINE. [Concomitant]
     Active Substance: DEXMEDETOMIDINE
     Indication: AGITATION
     Dosage: (INFUSION) UNK
     Route: 042

REACTIONS (2)
  - Off label use [Unknown]
  - Drug ineffective for unapproved indication [Unknown]
